FAERS Safety Report 21456003 (Version 1)
Quarter: 2022Q4

REPORT INFORMATION
  Report Type: Spontaneous
  Country: US (occurrence: None)
  Receive Date: 20221013
  Receipt Date: 20221013
  Transmission Date: 20230113
  Serious: No
  Sender: FDA-Public Use
  Company Number: None

PATIENT
  Age: 62 Year
  Sex: Female
  Weight: 79.38 kg

DRUGS (1)
  1. CANNABIDIOL\CANNABIGEROL\HERBALS [Suspect]
     Active Substance: CANNABIDIOL\CANNABIGEROL\HERBALS
     Indication: Pain
     Dates: start: 20220925, end: 20220926

REACTIONS (4)
  - Product odour abnormal [None]
  - Product colour issue [None]
  - Product taste abnormal [None]
  - Nausea [None]
